FAERS Safety Report 5018464-1 (Version None)
Quarter: 2006Q2

REPORT INFORMATION
  Report Type: 
  Country: None (occurrence: None)
  Receive Date: 20060530
  Receipt Date: 20060523
  Transmission Date: 20061013
  Serious: Yes (Hospitalization)
  Sender: FDA-Public Use
  Company Number: 2005BI020150

PATIENT
  Age: 67 Year
  Sex: Male

DRUGS (1)
  1. AVONEX [Suspect]
     Indication: MULTIPLE SCLEROSIS
     Dosage: 30 UG; QW; IM
     Route: 030
     Dates: start: 20040705

REACTIONS (5)
  - AMNESIA [None]
  - DEVICE BREAKAGE [None]
  - FEMUR FRACTURE [None]
  - ROAD TRAFFIC ACCIDENT [None]
  - WEIGHT DECREASED [None]
